FAERS Safety Report 5197628-0 (Version None)
Quarter: 2006Q4

REPORT INFORMATION
  Report Type: 
  Country: None (occurrence: None)
  Receive Date: 20061228
  Receipt Date: 20061215
  Transmission Date: 20070319
  Serious: Yes (Hospitalization)
  Sender: FDA-Public Use
  Company Number: 2006-152056-NL

PATIENT
  Age: 18 Year
  Sex: Female

DRUGS (1)
  1. NUVARING [Suspect]
     Indication: CONTRACEPTION
     Dosage: DF
     Dates: start: 20060816, end: 20060101

REACTIONS (4)
  - ABDOMINAL PAIN LOWER [None]
  - PELVIC PAIN [None]
  - POLLAKIURIA [None]
  - VULVOVAGINAL DISCOMFORT [None]
